FAERS Safety Report 11291992 (Version 1)
Quarter: 2015Q3

REPORT INFORMATION
  Report Type: Spontaneous
  Country: US (occurrence: None)
  Receive Date: 20150721
  Receipt Date: 20150721
  Transmission Date: 20151125
  Serious: No
  Sender: FDA-Public Use
  Company Number: None

PATIENT
  Age: 68 Year
  Sex: Male
  Weight: 85.28 kg

DRUGS (1)
  1. VARENICLINE 1MG PFIZER [Suspect]
     Active Substance: VARENICLINE
     Indication: SMOKING CESSATION THERAPY
     Route: 048
     Dates: start: 20150608, end: 20150709

REACTIONS (1)
  - Alopecia [None]

NARRATIVE: CASE EVENT DATE: 20150717
